FAERS Safety Report 7044660-8 (Version None)
Quarter: 2010Q3

REPORT INFORMATION
  Report Type: 
  Country: None (occurrence: None)
  Receive Date: 20100929
  Receipt Date: 20100624
  Transmission Date: 20110219
  Serious: No
  Sender: FDA-Public Use
  Company Number: US-WYE-H16178910

PATIENT
  Age: 77 Year
  Sex: Female
  Weight: 74.91 kg

DRUGS (4)
  1. PRISTIQ [Suspect]
     Indication: ANXIETY
     Dosage: 50 MG 1X PER 1 DAY, ORAL
     Route: 048
     Dates: start: 20100301
  2. PRISTIQ [Suspect]
     Indication: DEPRESSION
     Dosage: 50 MG 1X PER 1 DAY, ORAL
     Route: 048
     Dates: start: 20100301
  3. KLONOPIN [Concomitant]
  4. MULTI-VITAMINS [Concomitant]

REACTIONS (2)
  - DIZZINESS [None]
  - HEADACHE [None]
